FAERS Safety Report 23457690 (Version 1)
Quarter: 2024Q1

REPORT INFORMATION
  Report Type: Spontaneous
  Country: US (occurrence: US)
  Receive Date: 20240130
  Receipt Date: 20240130
  Transmission Date: 20240410
  Serious: No
  Sender: FDA-Public Use
  Company Number: US-BAUSCH-BL-2024-001079

PATIENT

DRUGS (2)
  1. ATIVAN [Suspect]
     Active Substance: LORAZEPAM
     Indication: Generalised anxiety disorder
     Dosage: NIGHTLY BEFORE BED
     Route: 065
     Dates: start: 2022
  2. ATIVAN [Suspect]
     Active Substance: LORAZEPAM
     Indication: Sleep disorder
     Dosage: AS NEEDED DAILY
     Route: 065

REACTIONS (4)
  - Abulia [Unknown]
  - Restlessness [Unknown]
  - Sleep disorder [Unknown]
  - Therapy cessation [Unknown]
